FAERS Safety Report 8338212-7 (Version None)
Quarter: 2012Q1

REPORT INFORMATION
  Report Type: 
  Country: None (occurrence: None)
  Receive Date: 20120329
  Receipt Date: 20120201
  Transmission Date: 20120608
  Serious: Yes (Life-Threatening)
  Sender: FDA-Public Use
  Company Number: 1187568

PATIENT
  Age: 70 Year
  Sex: Female
  Weight: 90.2 kg

DRUGS (2)
  1. DILTIAZEM HYDROCHLORIDE [Suspect]
     Indication: ATRIAL FIBRILLATION
     Dosage: INTRAVENOUS (NOT OTHERWISE SPECIFIED)
     Route: 042
  2. METOPROLOL SUCCINATE [Suspect]
     Indication: ATRIAL FIBRILLATION
     Dosage: 1 TAB, DAILY, ORAL
     Route: 048

REACTIONS (2)
  - CARDIAC ARREST [None]
  - DRUG INTERACTION [None]
